FAERS Safety Report 22056263 (Version 1)
Quarter: 2023Q1

REPORT INFORMATION
  Report Type: Spontaneous
  Country: US (occurrence: US)
  Receive Date: 20230302
  Receipt Date: 20230302
  Transmission Date: 20230417
  Serious: Yes (Other)
  Sender: FDA-Public Use
  Company Number: US-BRISTOL-MYERS SQUIBB COMPANY-2023-029131

PATIENT
  Age: 74 Year
  Sex: Male

DRUGS (2)
  1. APIXABAN [Suspect]
     Active Substance: APIXABAN
     Indication: Pulmonary embolism
  2. APIXABAN [Suspect]
     Active Substance: APIXABAN

REACTIONS (2)
  - Acute kidney injury [Unknown]
  - Anticoagulation drug level above therapeutic [Unknown]
